FAERS Safety Report 4879860-6 (Version None)
Quarter: 2006Q1

REPORT INFORMATION
  Report Type: 
  Country: None (occurrence: None)
  Receive Date: 20060113
  Receipt Date: 20060104
  Transmission Date: 20060701
  Serious: Yes (Other)
  Sender: FDA-Public Use
  Company Number: BR-BOEHRINGER INGELHEIM PHARMACEUTICALS, INC.-2006-BP-00040BR

PATIENT
  Age: 70 Year
  Sex: Female

DRUGS (2)
  1. MICARDIS [Suspect]
     Indication: HYPERTENSION
     Route: 048
     Dates: start: 20040101, end: 20051001
  2. PURAN T4 [Suspect]
     Indication: HYPOTHYROIDISM

REACTIONS (2)
  - DERMATITIS CONTACT [None]
  - VULVAL CANCER [None]
